FAERS Safety Report 24389056 (Version 1)
Quarter: 2024Q4

REPORT INFORMATION
  Report Type: Spontaneous
  Country: US (occurrence: US)
  Receive Date: 20241002
  Receipt Date: 20241002
  Transmission Date: 20250115
  Serious: No
  Sender: BAUSCH AND LOMB
  Company Number: US-BAUSCHBL-2024BNL033972

PATIENT
  Sex: Female

DRUGS (1)
  1. MIEBO [Suspect]
     Active Substance: PERFLUOROHEXYLOCTANE
     Indication: Product used for unknown indication
     Route: 065
     Dates: start: 202408

REACTIONS (4)
  - Lip pain [Unknown]
  - Swollen tongue [Unknown]
  - Glossodynia [Unknown]
  - Gingival disorder [Unknown]

NARRATIVE: CASE EVENT DATE: 20240801
